FAERS Safety Report 24270222 (Version 1)
Quarter: 2024Q3

REPORT INFORMATION
  Report Type: Spontaneous
  Country: US (occurrence: US)
  Receive Date: 20240830
  Receipt Date: 20240830
  Transmission Date: 20241016
  Serious: Yes (Other)
  Sender: CB FLEET
  Company Number: US-PRESTIGE-202408-US-002871

PATIENT
  Age: 2 Year
  Sex: Female
  Weight: 14.97 kg

DRUGS (3)
  1. PEDIA-LAX (GLYCERIN) [Suspect]
     Active Substance: GLYCERIN
     Indication: Constipation
     Dosage: USED ONCE
     Route: 054
  2. PEDIA-LAX (GLYCERIN) [Suspect]
     Active Substance: GLYCERIN
     Route: 054
  3. PEDIA-LAX (GLYCERIN) [Suspect]
     Active Substance: GLYCERIN
     Route: 054

REACTIONS (3)
  - Loss of consciousness [Recovered/Resolved]
  - Urticaria [Recovered/Resolved]
  - Vomiting projectile [Recovered/Resolved]
